FAERS Safety Report 9528140 (Version 1)
Quarter: 2013Q3

REPORT INFORMATION
  Report Type: Spontaneous
  Country: TR (occurrence: TR)
  Receive Date: 20130917
  Receipt Date: 20130917
  Transmission Date: 20140515
  Serious: Yes (Hospitalization)
  Sender: FDA-Public Use
  Company Number: TR-JNJFOC-20130908339

PATIENT
  Sex: Female

DRUGS (4)
  1. XARELTO [Suspect]
     Indication: PRODUCT USED FOR UNKNOWN INDICATION
     Route: 048
  2. DIDERAL [Concomitant]
     Route: 065
  3. TRACLEER [Concomitant]
     Route: 065
  4. REVATIO [Concomitant]
     Route: 065

REACTIONS (2)
  - Haemoptysis [Recovering/Resolving]
  - Platelet count decreased [Recovering/Resolving]
